FAERS Safety Report 4997727-X (Version None)
Quarter: 2006Q1

REPORT INFORMATION
  Report Type: 
  Country: None (occurrence: None)
  Receive Date: 20060315
  Receipt Date: 20060127
  Transmission Date: 20060701
  Serious: Yes (Other)
  Sender: FDA-Public Use
  Company Number: 434260

PATIENT
  Age: 66 Year
  Sex: Female

DRUGS (1)
  1. BONIVA [Suspect]
     Dosage: ORAL
     Route: 048
     Dates: start: 20051015

REACTIONS (2)
  - ABDOMINAL DISTENSION [None]
  - ERUCTATION [None]
